FAERS Safety Report 5864590-4 (Version None)
Quarter: 2008Q3

REPORT INFORMATION
  Report Type: 
  Country: None (occurrence: None)
  Receive Date: 20080829
  Receipt Date: 20080716
  Transmission Date: 20090109
  Serious: No
  Sender: FDA-Public Use
  Company Number: US-ABBOTT-08P-163-0463500-00

PATIENT
  Sex: Female

DRUGS (17)
  1. SIMCOR [Suspect]
     Indication: BLOOD CHOLESTEROL INCREASED
     Dosage: 500/20 MG AT BEDTIME
     Route: 048
     Dates: start: 20080527
  2. LANSOPRAZOLE [Concomitant]
     Indication: DRUG USE FOR UNKNOWN INDICATION
  3. PEMIDONE [Concomitant]
     Indication: TREMOR
  4. PREGABALIN [Concomitant]
     Indication: DRUG USE FOR UNKNOWN INDICATION
  5. FLEXERIL [Concomitant]
     Indication: DRUG USE FOR UNKNOWN INDICATION
  6. BUPROPION HCL [Concomitant]
     Indication: DRUG USE FOR UNKNOWN INDICATION
  7. DOXAZOSIN MESYLATE [Concomitant]
     Indication: BLADDER DISORDER
     Dosage: AT BEDTIME
  8. TIOTROPIUM BROMIDE [Concomitant]
     Indication: DRUG USE FOR UNKNOWN INDICATION
     Route: 055
  9. OMNARIS [Concomitant]
     Indication: DRUG USE FOR UNKNOWN INDICATION
     Route: 055
  10. MONTELUKAST SODIUM [Concomitant]
     Indication: DRUG USE FOR UNKNOWN INDICATION
  11. SALBUTAMOL [Concomitant]
     Indication: DRUG USE FOR UNKNOWN INDICATION
  12. MULTI-VITAMIN [Concomitant]
     Indication: DRUG USE FOR UNKNOWN INDICATION
  13. CA OCTATE [Concomitant]
     Indication: DRUG USE FOR UNKNOWN INDICATION
  14. SENOKOT [Concomitant]
     Indication: CONSTIPATION PROPHYLAXIS
  15. TRAMADOL HCL [Concomitant]
     Indication: DRUG USE FOR UNKNOWN INDICATION
  16. ACETYLSALICYLIC ACID SRT [Concomitant]
     Indication: DRUG USE FOR UNKNOWN INDICATION
     Dosage: BEFORE SIMCOR
  17. IBUPROFEN [Concomitant]
     Indication: DRUG USE FOR UNKNOWN INDICATION

REACTIONS (1)
  - FLUSHING [None]
